FAERS Safety Report 5493537-8 (Version None)
Quarter: 2007Q4

REPORT INFORMATION
  Report Type: 
  Country: None (occurrence: None)
  Receive Date: 20071023
  Receipt Date: 20071010
  Transmission Date: 20080405
  Serious: Yes (Death, Hospitalization)
  Sender: FDA-Public Use
  Company Number: CA-SHR-CA-SHR-04-020311

PATIENT
  Age: 45 Year
  Sex: Male

DRUGS (4)
  1. BETASERON [Suspect]
     Indication: MULTIPLE SCLEROSIS
     Dosage: 8 MIU, EVERY 2D
     Route: 058
     Dates: start: 20010528, end: 20040203
  2. PREDNISONE [Concomitant]
  3. RANITIDINE HCL [Concomitant]
     Indication: DYSPEPSIA
  4. DILANTIN [Concomitant]

REACTIONS (5)
  - CARDIAC DISORDER [None]
  - LUNG NEOPLASM MALIGNANT [None]
  - OEDEMA PERIPHERAL [None]
  - PNEUMONIA [None]
  - THROMBOSIS [None]
